FAERS Safety Report 6539104-6 (Version None)
Quarter: 2010Q1

REPORT INFORMATION
  Report Type: 
  Country: None (occurrence: None)
  Receive Date: 20100115
  Receipt Date: 20100111
  Transmission Date: 20100710
  Serious: Yes (Death, Hospitalization, Other)
  Sender: FDA-Public Use
  Company Number: PHHY2009BR44359

PATIENT
  Sex: Male

DRUGS (2)
  1. GALVUS [Suspect]
     Indication: TYPE 2 DIABETES MELLITUS
     Dosage: ONE TABLET (50 MG) IN THE MORNING AND NIGHT
     Route: 048
  2. RASILEZ [Suspect]
     Indication: HYPERTENSION
     Dosage: 1 TABLET (300 MG) DAILY

REACTIONS (2)
  - INFECTION [None]
  - PNEUMONIA [None]
